FAERS Safety Report 16189614 (Version 1)
Quarter: 2019Q2

REPORT INFORMATION
  Report Type: Spontaneous
  Country: US (occurrence: US)
  Receive Date: 20190411
  Receipt Date: 20190411
  Transmission Date: 20190711
  Serious: Yes (Other)
  Sender: FDA-Public Use
  Company Number: None

PATIENT
  Age: 53 Year
  Sex: Female
  Weight: 47.25 kg

DRUGS (4)
  1. NEUROTIN [Concomitant]
     Active Substance: GABAPENTIN
  2. AIMOVIG [Suspect]
     Active Substance: ERENUMAB-AOOE
     Indication: MIGRAINE
     Dosage: ?          QUANTITY:1 INJECTION(S);OTHER FREQUENCY:ONCE EVERY 28 DAYS;?
     Route: 058
     Dates: start: 20190410, end: 20190410
  3. SUMATRIPTAN. [Concomitant]
     Active Substance: SUMATRIPTAN
  4. TOPIRAMATE. [Concomitant]
     Active Substance: TOPIRAMATE

REACTIONS (4)
  - Insomnia [None]
  - Migraine [None]
  - Chills [None]
  - Paraesthesia [None]

NARRATIVE: CASE EVENT DATE: 20190410
